FAERS Safety Report 9837888 (Version 1)
Quarter: 2014Q1

REPORT INFORMATION
  Report Type: Spontaneous
  Country: US (occurrence: US)
  Receive Date: 20140123
  Receipt Date: 20140123
  Transmission Date: 20141002
  Serious: Yes (Other)
  Sender: FDA-Public Use
  Company Number: US-ALLERGAN-1401031US

PATIENT
  Sex: Female

DRUGS (2)
  1. BOTOX [Suspect]
     Indication: PRODUCT USED FOR UNKNOWN INDICATION
     Dosage: UNK, SINGLE
     Dates: start: 200705, end: 200705
  2. BOTOX [Suspect]
     Dosage: UNK
     Dates: start: 200804, end: 200804

REACTIONS (2)
  - Respiratory arrest [Recovered/Resolved]
  - Botulism [Unknown]
